FAERS Safety Report 13322316 (Version 1)
Quarter: 2017Q1

REPORT INFORMATION
  Report Type: Spontaneous
  Country: HU (occurrence: HU)
  Receive Date: 20170310
  Receipt Date: 20170310
  Transmission Date: 20170428
  Serious: Yes (Death, Hospitalization)
  Sender: FDA-Public Use
  Company Number: HU-ACTELION-A-CH2017-150438

PATIENT
  Age: 68 Year
  Sex: Female

DRUGS (6)
  1. SILDENAFIL. [Concomitant]
     Active Substance: SILDENAFIL
     Indication: PULMONARY ARTERIAL HYPERTENSION
     Dosage: 20 MG, TID
     Route: 048
     Dates: start: 20140216, end: 20170227
  2. ENOXAPARIN [Concomitant]
     Active Substance: ENOXAPARIN
     Indication: ATRIAL FIBRILLATION
     Dosage: 0.2 ML, OD
     Route: 058
     Dates: end: 20170227
  3. TRACLEER [Suspect]
     Active Substance: BOSENTAN
     Indication: PULMONARY ARTERIAL HYPERTENSION
     Dosage: 125 MG, BID
     Route: 048
     Dates: start: 20140616, end: 20170227
  4. HYDROCHLOROTHIAZIDE. [Concomitant]
     Active Substance: HYDROCHLOROTHIAZIDE
     Indication: RIGHT VENTRICULAR FAILURE
     Dosage: 40 MG, UNK
     Route: 048
     Dates: end: 20170227
  5. BETAXOLOL. [Concomitant]
     Active Substance: BETAXOLOL
     Indication: ATRIAL FIBRILLATION
     Dosage: 5 MG, OD
     Dates: end: 20170227
  6. PANTOPRAZOL [Concomitant]
     Active Substance: PANTOPRAZOLE SODIUM
     Indication: GASTRIC ULCER
     Dosage: 40 MG, BID
     Route: 048
     Dates: end: 20170227

REACTIONS (10)
  - Intra-abdominal fluid collection [Unknown]
  - Pulmonary arterial hypertension [Unknown]
  - Condition aggravated [Unknown]
  - Renal haematoma [Unknown]
  - Pleural effusion [Unknown]
  - Right ventricular failure [Fatal]
  - Anaemia [Unknown]
  - Renal failure [Fatal]
  - Renal haemorrhage [Unknown]
  - Hypotension [Unknown]

NARRATIVE: CASE EVENT DATE: 201702
